FAERS Safety Report 15616834 (Version 1)
Quarter: 2018Q4

REPORT INFORMATION
  Report Type: Report from Study
  Country: GB (occurrence: GB)
  Receive Date: 20181114
  Receipt Date: 20181114
  Transmission Date: 20190205
  Serious: Yes (Other)
  Sender: FDA-Public Use
  Company Number: GB-CELLTRION INC.-2018GB023719

PATIENT

DRUGS (4)
  1. REMSIMA [Suspect]
     Active Substance: INFLIXIMAB
     Indication: CROHN^S DISEASE
     Dosage: 500 MG, 8 WEEKLY
     Route: 065
     Dates: start: 20170517, end: 20170517
  2. REMSIMA [Suspect]
     Active Substance: INFLIXIMAB
     Dosage: 505 MG
     Route: 065
     Dates: start: 20170907, end: 20170907
  3. AZATHIOPRINE. [Concomitant]
     Active Substance: AZATHIOPRINE
     Indication: CROHN^S DISEASE
     Dosage: UNK
     Route: 048
     Dates: start: 20150202
  4. REMSIMA [Suspect]
     Active Substance: INFLIXIMAB
     Dosage: 500 MG
     Route: 065
     Dates: start: 20171102, end: 20171102

REACTIONS (2)
  - Maternal exposure during pregnancy [Unknown]
  - Abortion spontaneous [Unknown]

NARRATIVE: CASE EVENT DATE: 20171103
